FAERS Safety Report 16173718 (Version 1)
Quarter: 2019Q2

REPORT INFORMATION
  Report Type: Spontaneous
  Country: US (occurrence: US)
  Receive Date: 20190408
  Receipt Date: 20190408
  Transmission Date: 20190711
  Serious: Yes (Hospitalization)
  Sender: FDA-Public Use
  Company Number: None

PATIENT
  Age: 63 Year
  Sex: Female
  Weight: 67.5 kg

DRUGS (1)
  1. HYDROCHLOROTHIAZIDE CAP 12.5MG [Suspect]
     Active Substance: HYDROCHLOROTHIAZIDE
     Indication: BLOOD PRESSURE MEASUREMENT
     Route: 048

REACTIONS (6)
  - Blood pressure increased [None]
  - Product substitution issue [None]
  - Transient ischaemic attack [None]
  - Migraine [None]
  - Product complaint [None]
  - Visual impairment [None]

NARRATIVE: CASE EVENT DATE: 20190403
